FAERS Safety Report 24091357 (Version 2)
Quarter: 2025Q2

REPORT INFORMATION
  Report Type: Report from Study
  Country: IN (occurrence: None)
  Receive Date: 20240715
  Receipt Date: 20250421
  Transmission Date: 20250717
  Serious: Yes (Hospitalization, Other)
  Sender: INCYTE
  Company Number: IN-002147023-NVSC2024IN142951

PATIENT
  Age: 30 Year

DRUGS (3)
  1. RUXOLITINIB [Suspect]
     Active Substance: RUXOLITINIB
     Indication: Graft versus host disease
     Dosage: 5 MG, BID
  2. RUXOLITINIB [Suspect]
     Active Substance: RUXOLITINIB
  3. RUXOLITINIB [Suspect]
     Active Substance: RUXOLITINIB
     Dosage: 5 MG, QD
     Route: 065

REACTIONS (7)
  - Laboratory test abnormal [Unknown]
  - Hypokalaemia [Unknown]
  - Jaundice [Unknown]
  - Decreased appetite [Unknown]
  - Colitis [Unknown]
  - Diarrhoea [Unknown]
  - Oesophagitis [Unknown]
